FAERS Safety Report 16445071 (Version 1)
Quarter: 2019Q2

REPORT INFORMATION
  Report Type: Spontaneous
  Country: CA (occurrence: CA)
  Receive Date: 20190618
  Receipt Date: 20190618
  Transmission Date: 20190711
  Serious: Yes (Other)
  Sender: FDA-Public Use
  Company Number: CA-AMGEN-CANSL2019071365

PATIENT
  Age: 80 Year
  Sex: Female
  Weight: 70.75 kg

DRUGS (6)
  1. TELMISARTAN. [Concomitant]
     Active Substance: TELMISARTAN
  2. MICARDIS [Concomitant]
     Active Substance: TELMISARTAN
     Dosage: 20 MILLIGRAM, QD
  3. CRESTOR [Concomitant]
     Active Substance: ROSUVASTATIN CALCIUM
     Dosage: 5 MILLIGRAM, 5 DAYS PER WEEK
  4. COENZYME Q10 [Concomitant]
     Active Substance: UBIDECARENONE
  5. PROLIA [Suspect]
     Active Substance: DENOSUMAB
     Indication: PROPHYLAXIS
     Dosage: 60 MILLIGRAM PER MILLILITRE, Q6MO
     Route: 058
     Dates: start: 201505
  6. ASPIRIN [ACETYLSALICYLIC ACID] [Concomitant]
     Active Substance: ASPIRIN
     Dosage: ENTERIC-COATED, 81 MILLIGRAM, QD

REACTIONS (15)
  - Pain in extremity [Unknown]
  - Dyspnoea [Not Recovered/Not Resolved]
  - Spinal disorder [Unknown]
  - Arthritis [Unknown]
  - Vertebral foraminal stenosis [Unknown]
  - Back pain [Unknown]
  - Pain [Unknown]
  - Coronary artery disease [Unknown]
  - Facet joint syndrome [Unknown]
  - Dry skin [Unknown]
  - Spinal claudication [Unknown]
  - Spinal stenosis [Unknown]
  - Intervertebral disc degeneration [Unknown]
  - Angina pectoris [Unknown]
  - Neck pain [Unknown]

NARRATIVE: CASE EVENT DATE: 2015
